FAERS Safety Report 5264042-9 (Version None)
Quarter: 2007Q1

REPORT INFORMATION
  Report Type: 
  Country: None (occurrence: None)
  Receive Date: 20070313
  Receipt Date: 20070307
  Transmission Date: 20070707
  Serious: Yes (Death, Life-Threatening, Other)
  Sender: FDA-Public Use
  Company Number: HQWYE256216JUN06

PATIENT
  Sex: Male
  Weight: 68 kg

DRUGS (6)
  1. MYLOTARG [Suspect]
     Indication: ACUTE MYELOID LEUKAEMIA RECURRENT
     Route: 041
     Dates: start: 20060327, end: 20060327
  2. OMEGACIN [Concomitant]
     Route: 041
     Dates: start: 20060327, end: 20060407
  3. NEUTROGIN [Concomitant]
     Dosage: 300 U G/DAY
     Route: 041
     Dates: start: 20060405, end: 20060408
  4. OMEGA-3 TRIGLYCERIDES [Concomitant]
  5. POLYMYXIN B SULFATE [Concomitant]
     Indication: PROPHYLAXIS
     Dosage: 4.8 MIU /DAY
     Route: 048
     Dates: start: 20050909, end: 20060406
  6. PARIET [Concomitant]
     Indication: PROPHYLAXIS
     Dosage: 10 MG/DAY
     Route: 048
     Dates: start: 20060322, end: 20060406

REACTIONS (3)
  - DISSEMINATED INTRAVASCULAR COAGULATION [None]
  - INTERSTITIAL LUNG DISEASE [None]
  - NEUTROPHIL COUNT DECREASED [None]
